FAERS Safety Report 25203493 (Version 1)
Quarter: 2025Q2

REPORT INFORMATION
  Report Type: Spontaneous
  Country: DE (occurrence: DE)
  Receive Date: 20250416
  Receipt Date: 20250416
  Transmission Date: 20250716
  Serious: Yes (Congenital Anomaly)
  Sender: ALEXION PHARMACEUTICALS
  Company Number: DE-EMB-M201900703-1

PATIENT
  Weight: 3.82 kg

DRUGS (6)
  1. PULMICORT TURBUHALER [Suspect]
     Active Substance: BUDESONIDE
     Indication: Sarcoidosis
     Dosage: 6 MILLIGRAM, QDINITIAL 6MG DAILY, REDUCED TO 3MG DAILY FROM GESTATIONAL WEEK 8
  2. PULMICORT TURBUHALER [Suspect]
     Active Substance: BUDESONIDE
     Dosage: 6 MILLIGRAM, QDINITIAL 6MG DAILY, REDUCED TO 3MG DAILY FROM GESTATIONAL WEEK 8
  3. METHYLDOPA [Suspect]
     Active Substance: METHYLDOPA
     Indication: Hypertension
     Dosage: 250 MILLIGRAM, QD
  4. OMEPRAZOLE [Concomitant]
     Active Substance: OMEPRAZOLE
     Indication: Gastritis
  5. UNSPECIFIED INGREDIENT [Concomitant]
     Active Substance: UNSPECIFIED INGREDIENT
     Indication: Tobacco user
  6. RAMIPRIL [Concomitant]
     Active Substance: RAMIPRIL
     Indication: Hypertension
     Dosage: 5 MILLIGRAM, QD

REACTIONS (2)
  - Kidney duplex [Not Recovered/Not Resolved]
  - Foetal exposure during pregnancy [Unknown]
